FAERS Safety Report 9215093 (Version 1)
Quarter: 2013Q2

REPORT INFORMATION
  Report Type: Spontaneous
  Country: US (occurrence: US)
  Receive Date: 20130405
  Receipt Date: 20130405
  Transmission Date: 20140414
  Serious: Yes (Hospitalization, Other)
  Sender: FDA-Public Use
  Company Number: US-BAYER-2013-041460

PATIENT
  Age: 33 Year
  Sex: Female
  Weight: 123 kg

DRUGS (5)
  1. YAZ [Suspect]
  2. ASPIRIN [Concomitant]
  3. MOTRIN [Concomitant]
  4. MULTIVITAMINS [Concomitant]
  5. PERCOCET [Concomitant]

REACTIONS (3)
  - Pulmonary embolism [None]
  - Deep vein thrombosis [Recovered/Resolved]
  - Thrombophlebitis superficial [None]
